FAERS Safety Report 10032005 (Version 2)
Quarter: 2014Q2

REPORT INFORMATION
  Report Type: Spontaneous
  Country: US (occurrence: US)
  Receive Date: 20140324
  Receipt Date: 20140509
  Transmission Date: 20141212
  Serious: No
  Sender: FDA-Public Use
  Company Number: US-PFIZER INC-2014079565

PATIENT
  Age: 86 Year
  Sex: Female
  Weight: 46.71 kg

DRUGS (2)
  1. ADVIL PM [Suspect]
     Indication: INSOMNIA
     Dosage: UNK
     Dates: start: 201403
  2. TAMOXIFEN [Concomitant]
     Indication: NEOPLASM MALIGNANT
     Dosage: 20 MG, DAILY
     Dates: start: 2009

REACTIONS (2)
  - Drug ineffective [Unknown]
  - Back pain [Unknown]
